FAERS Safety Report 20289866 (Version 1)
Quarter: 2022Q1

REPORT INFORMATION
  Report Type: Spontaneous
  Country: US (occurrence: None)
  Receive Date: 20220103
  Receipt Date: 20220103
  Transmission Date: 20220424
  Serious: Yes (Other)
  Sender: FDA-Public Use
  Company Number: None

PATIENT
  Age: 83 Year
  Sex: Male
  Weight: 81.9 kg

DRUGS (7)
  1. TOCILIZUMAB [Suspect]
     Active Substance: TOCILIZUMAB
     Indication: COVID-19
     Dosage: FREQUENCY : ONCE;?
     Route: 040
     Dates: start: 20211229, end: 20211229
  2. ENOXAPARIN [Concomitant]
  3. FAMOTIDINE [Concomitant]
  4. DEXAMETHASONE [Concomitant]
     Active Substance: DEXAMETHASONE
  5. METOPROLOL [Concomitant]
  6. REMDESIVIR [Concomitant]
  7. REMDESIVIR [Concomitant]

REACTIONS (4)
  - Therapy cessation [None]
  - Atrial fibrillation [None]
  - Embolism [None]
  - Cerebral infarction [None]

NARRATIVE: CASE EVENT DATE: 20220103
